FAERS Safety Report 9532096 (Version 1)
Quarter: 2013Q3

REPORT INFORMATION
  Report Type: Spontaneous
  Country: US (occurrence: US)
  Receive Date: 20130918
  Receipt Date: 20130918
  Transmission Date: 20140515
  Serious: No
  Sender: FDA-Public Use
  Company Number: US-009507513-1309USA004080

PATIENT
  Age: 49 Year
  Sex: Female

DRUGS (5)
  1. SINEMET [Suspect]
     Indication: PARKINSON^S DISEASE
     Dosage: 10MG/100MG ONE TABLET EVERY THREE HOURS
     Route: 048
     Dates: start: 1974
  2. SINEMET [Suspect]
     Dosage: 10MG/100MG ONE TABLET EVERY THREE HOURS
     Route: 048
  3. BROMOCRIPTINE [Concomitant]
  4. BENZTROPINE MESYLATE [Concomitant]
  5. EFFEXOR [Concomitant]

REACTIONS (4)
  - Muscle rigidity [Unknown]
  - Crying [Unknown]
  - Pain [Unknown]
  - Drug ineffective [Unknown]
